FAERS Safety Report 19883190 (Version 1)
Quarter: 2021Q3

REPORT INFORMATION
  Report Type: Spontaneous
  Country: US (occurrence: US)
  Receive Date: 20210926
  Receipt Date: 20210926
  Transmission Date: 20211014
  Serious: No
  Sender: FDA-Public Use
  Company Number: US-SA-2021SA313499

PATIENT
  Sex: Female
  Weight: 69.48 kg

DRUGS (1)
  1. DUPIXENT [Suspect]
     Active Substance: DUPILUMAB
     Indication: RASH
     Dosage: 300 MG, QOW
     Route: 058

REACTIONS (4)
  - Skin disorder [Unknown]
  - Alopecia [Unknown]
  - Condition aggravated [Unknown]
  - Product use in unapproved indication [Unknown]
